FAERS Safety Report 5121625-4 (Version None)
Quarter: 2006Q4

REPORT INFORMATION
  Report Type: 
  Country: None (occurrence: None)
  Receive Date: 20061003
  Receipt Date: 20060921
  Transmission Date: 20070319
  Serious: Yes (Hospitalization)
  Sender: FDA-Public Use
  Company Number: 2006117574

PATIENT
  Sex: Female

DRUGS (6)
  1. MEDROL [Suspect]
     Indication: BREAST NEOPLASM
     Dosage: 200 MG (50 MG, 4 IN 1 D);
     Dates: start: 20060323, end: 20060325
  2. PIOGLITAZONE HCL [Concomitant]
  3. DOCETAXEL [Concomitant]
  4. ONDANSETRON [Concomitant]
  5. METHYLPREDNISOLONE HEMISUCCINATE [Concomitant]
  6. ANASTROZOLE [Concomitant]

REACTIONS (1)
  - HYPERGLYCAEMIA [None]
